FAERS Safety Report 6099374-8 (Version None)
Quarter: 2009Q1

REPORT INFORMATION
  Report Type: 
  Country: None (occurrence: None)
  Receive Date: 20090303
  Receipt Date: 20090219
  Transmission Date: 20090719
  Serious: Yes (Life-Threatening)
  Sender: FDA-Public Use
  Company Number: AT-PFIZER INC-2009173072

PATIENT

DRUGS (12)
  1. HALCION [Suspect]
     Dosage: 0.25 MG, UNK
     Route: 048
  2. TRAMADOL HCL [Suspect]
     Route: 048
  3. DOMINAL FORTE [Suspect]
     Route: 048
  4. HYDAL [Suspect]
     Route: 048
  5. FUROHEXAL [Concomitant]
     Dosage: 40 MG, UNK
     Route: 048
  6. KCL-RETARD [Concomitant]
     Route: 048
  7. KLACID UNO [Concomitant]
     Route: 048
  8. MYCOSTATIN [Concomitant]
     Route: 048
  9. RISPERDAL [Concomitant]
     Dosage: 2.5 MG, 1X/DAY
     Route: 048
  10. CEFUROXIME [Concomitant]
     Dosage: 500 MG, 2X/DAY
     Route: 048
  11. ACETYLSALICYLIC ACID [Concomitant]
  12. MELOXICAM [Concomitant]

REACTIONS (3)
  - MULTIPLE DRUG OVERDOSE [None]
  - SOMNOLENCE [None]
  - STUPOR [None]
